FAERS Safety Report 18474300 (Version 28)
Quarter: 2025Q1

REPORT INFORMATION
  Report Type: Report from Study
  Country: CO (occurrence: CO)
  Receive Date: 20201106
  Receipt Date: 20250110
  Transmission Date: 20250408
  Serious: Yes (Hospitalization, Other)
  Sender: NOVARTIS
  Company Number: None

PATIENT
  Age: 3 Year
  Sex: Male
  Weight: 17.6 kg

DRUGS (17)
  1. ILARIS [Suspect]
     Active Substance: CANAKINUMAB
     Indication: Still^s disease
     Dosage: 50 MG, QMO
     Route: 058
     Dates: start: 20180111
  2. ILARIS [Suspect]
     Active Substance: CANAKINUMAB
     Dosage: 60 MG, Q2MO (EVERY 8 WEEKS)
     Route: 058
     Dates: start: 20190626
  3. ILARIS [Suspect]
     Active Substance: CANAKINUMAB
     Dosage: 50 MG, QMO
     Route: 058
     Dates: start: 20190826, end: 20200916
  4. ILARIS [Suspect]
     Active Substance: CANAKINUMAB
     Dosage: 50 MG, QMO
     Route: 058
  5. ILARIS [Suspect]
     Active Substance: CANAKINUMAB
     Dosage: 60 MG, QMO
     Route: 058
  6. ILARIS [Suspect]
     Active Substance: CANAKINUMAB
     Dosage: 60 MG, QMO
     Route: 058
     Dates: start: 20190825, end: 202302
  7. ILARIS [Suspect]
     Active Substance: CANAKINUMAB
     Dosage: 150 MG, QMO
     Route: 058
  8. ILARIS [Suspect]
     Active Substance: CANAKINUMAB
     Dosage: 60 MG, Q2MO (EVERY 8 WEEKS)
     Route: 058
     Dates: start: 202310
  9. CYCLOSPORINE [Suspect]
     Active Substance: CYCLOSPORINE
     Indication: Haemophagocytic lymphohistiocytosis
     Dosage: 0.3 MG, Q12H
     Route: 048
  10. PREDNISOLONE [Concomitant]
     Active Substance: PREDNISOLONE
     Indication: Product used for unknown indication
     Dosage: 2.5 MG, QD
     Route: 048
  11. HYDROCHLOROTHIAZIDE [Concomitant]
     Active Substance: HYDROCHLOROTHIAZIDE
     Indication: Product used for unknown indication
     Dosage: 1.5 DOSAGE FORM, Q12H
     Route: 065
     Dates: start: 2019
  12. FOLIC ACID [Concomitant]
     Active Substance: FOLIC ACID
     Indication: Product used for unknown indication
     Dosage: 1 G, QD
     Route: 048
  13. ENALAPRIL [Concomitant]
     Active Substance: ENALAPRIL
     Indication: Hypertension
     Dosage: 1.5 DOSAGE FORM, Q12H
     Route: 065
     Dates: start: 2019
  14. ENALAPRIL [Concomitant]
     Active Substance: ENALAPRIL
     Dosage: 5 MG, Q12H (5 MG DILUTED ON 5 CC AND GIVEN 1.2)
     Route: 048
  15. AMLODIPINE BESYLATE [Concomitant]
     Active Substance: AMLODIPINE BESYLATE
     Indication: Hypertension
     Dosage: 5 MG, Q12H
     Route: 065
     Dates: start: 2019
  16. AMLODIPINE BESYLATE [Concomitant]
     Active Substance: AMLODIPINE BESYLATE
     Dosage: 5 MG, Q12H (5 MG DILUTED ON 5 CC AND GIVEN 1.2)
     Route: 065
  17. PREDNISONE [Concomitant]
     Active Substance: PREDNISONE
     Indication: Product used for unknown indication
     Route: 065

REACTIONS (24)
  - Pneumonia [Unknown]
  - Influenza [Not Recovered/Not Resolved]
  - Malaise [Unknown]
  - Pyrexia [Recovered/Resolved]
  - Pyrexia [Recovered/Resolved with Sequelae]
  - Pyrexia [Unknown]
  - Nasal congestion [Unknown]
  - Hepatomegaly [Recovered/Resolved]
  - Splenomegaly [Recovered/Resolved]
  - Decreased appetite [Recovered/Resolved]
  - Abdominal distension [Unknown]
  - Haemophagocytic lymphohistiocytosis [Recovered/Resolved]
  - Abdominal pain [Unknown]
  - Still^s disease [Not Recovered/Not Resolved]
  - Haemophagocytic lymphohistiocytosis [Unknown]
  - Autism spectrum disorder [Unknown]
  - Weight decreased [Not Recovered/Not Resolved]
  - Decreased immune responsiveness [Unknown]
  - Feeling abnormal [Unknown]
  - Weight increased [Unknown]
  - Constipation [Unknown]
  - Cough [Recovering/Resolving]
  - Off label use [Unknown]
  - Inappropriate schedule of product administration [Unknown]

NARRATIVE: CASE EVENT DATE: 20201015
